FAERS Safety Report 23582247 (Version 1)
Quarter: 2024Q1

REPORT INFORMATION
  Report Type: Spontaneous
  Country: US (occurrence: US)
  Receive Date: 20240229
  Receipt Date: 20240229
  Transmission Date: 20240409
  Serious: Yes (Other)
  Sender: FDA-Public Use
  Company Number: US-STRIDES ARCOLAB LIMITED-2024SP002294

PATIENT
  Sex: Male

DRUGS (6)
  1. TORSEMIDE [Interacting]
     Active Substance: TORSEMIDE
     Indication: Left ventricular failure
     Dosage: 50 MILLIGRAM, BID
     Route: 065
  2. TORSEMIDE [Interacting]
     Active Substance: TORSEMIDE
     Dosage: 50 MILLIGRAM DAILY (DOSE REDUCED)
     Route: 065
  3. SACUBITRIL\VALSARTAN [Interacting]
     Active Substance: SACUBITRIL\VALSARTAN
     Indication: Left ventricular failure
     Dosage: UNK, BID
     Route: 065
  4. METOPROLOL SUCCINATE [Interacting]
     Active Substance: METOPROLOL SUCCINATE
     Indication: Left ventricular failure
     Dosage: 12.5 MILLIGRAM PER DAY
     Route: 065
  5. TIRZEPATIDE [Interacting]
     Active Substance: TIRZEPATIDE
     Indication: Type 2 diabetes mellitus
     Dosage: 10 MILLIGRAM (GRADUALLY TITRATED TO 12.5MG ONCE WEEKLY) PER WEEK
     Route: 065
  6. TIRZEPATIDE [Interacting]
     Active Substance: TIRZEPATIDE
     Dosage: 12.5 MILLIGRAM PER WEEK
     Route: 065

REACTIONS (2)
  - Drug interaction [Unknown]
  - Hypotension [Recovered/Resolved]
